FAERS Safety Report 17575905 (Version 1)
Quarter: 2020Q1

REPORT INFORMATION
  Report Type: Spontaneous
  Country: IN (occurrence: IN)
  Receive Date: 20200324
  Receipt Date: 20200324
  Transmission Date: 20200409
  Serious: Yes (Death, Other)
  Sender: FDA-Public Use
  Company Number: IN-GE HEALTHCARE LIFE SCIENCES-2020CSU001173

PATIENT

DRUGS (6)
  1. OMNIPAQUE [Suspect]
     Active Substance: IOHEXOL
     Indication: ABDOMINAL DISTENSION
  2. OMNIPAQUE [Suspect]
     Active Substance: IOHEXOL
     Indication: ABDOMINAL DISTENSION
  3. OMNIPAQUE [Suspect]
     Active Substance: IOHEXOL
     Indication: VOMITING
  4. OMNIPAQUE [Suspect]
     Active Substance: IOHEXOL
     Indication: COMPUTERISED TOMOGRAM ABDOMEN
     Dosage: 60 ML, SINGLE
     Route: 042
     Dates: start: 20200316, end: 20200316
  5. OMNIPAQUE [Suspect]
     Active Substance: IOHEXOL
     Indication: COMPUTERISED TOMOGRAM ABDOMEN
     Dosage: 30 ML, SINGLE
     Route: 048
     Dates: start: 20200316, end: 20200316
  6. OMNIPAQUE [Suspect]
     Active Substance: IOHEXOL
     Indication: VOMITING

REACTIONS (2)
  - Chills [Fatal]
  - Cardiac arrest [Fatal]

NARRATIVE: CASE EVENT DATE: 20200316
